FAERS Safety Report 9908354 (Version 3)
Quarter: 2014Q2

REPORT INFORMATION
  Report Type: Report from Study
  Country: BR (occurrence: BR)
  Receive Date: 20140219
  Receipt Date: 20140618
  Transmission Date: 20141212
  Serious: Yes (Hospitalization)
  Sender: FDA-Public Use
  Company Number: BR-ROCHE-1289519

PATIENT
  Sex: Female
  Weight: 70 kg

DRUGS (23)
  1. MABTHERA [Suspect]
     Indication: RHEUMATOID ARTHRITIS
     Route: 042
     Dates: start: 20100401
  2. MABTHERA [Suspect]
     Route: 065
     Dates: start: 20120622
  3. MABTHERA [Suspect]
     Route: 065
     Dates: start: 20100415
  4. MABTHERA [Suspect]
     Route: 065
     Dates: start: 20110601
  5. ARAVA [Concomitant]
  6. FOLIC ACID [Concomitant]
  7. SIMVASTATIN [Concomitant]
  8. HYDROCHLOROTHIAZIDE [Concomitant]
  9. DONAREN [Concomitant]
  10. RIVOTRIL [Concomitant]
  11. DEPURA [Concomitant]
  12. DOLAMIN [Concomitant]
     Indication: RHEUMATOID ARTHRITIS
  13. ANGIPRESS (BRAZIL) [Concomitant]
  14. PREDSIM [Concomitant]
  15. OMEPRAZOLE [Concomitant]
  16. ALPRAZOLAM [Concomitant]
  17. ARTRODAR [Concomitant]
  18. TRAMAL [Concomitant]
  19. DORFLEX [Concomitant]
  20. PREDNISONE [Concomitant]
  21. FLUOXETINE [Concomitant]
  22. TRAVATAN [Concomitant]
  23. FERRITIN [Concomitant]

REACTIONS (7)
  - Immunodeficiency [Unknown]
  - Urinary tract infection [Unknown]
  - Pain [Unknown]
  - Peripheral swelling [Unknown]
  - Haemoglobin decreased [Unknown]
  - Diarrhoea [Not Recovered/Not Resolved]
  - Rheumatoid arthritis [Not Recovered/Not Resolved]
